FAERS Safety Report 25941397 (Version 1)
Quarter: 2025Q4

REPORT INFORMATION
  Report Type: Spontaneous
  Country: CA (occurrence: CA)
  Receive Date: 20251020
  Receipt Date: 20251020
  Transmission Date: 20260118
  Serious: Yes (Life-Threatening, Hospitalization, Other)
  Sender: JOHNSON AND JOHNSON
  Company Number: CA-JNJFOC-20251022163

PATIENT

DRUGS (1)
  1. USTEKINUMAB [Suspect]
     Active Substance: USTEKINUMAB
     Indication: Exposure during pregnancy
     Route: 064

REACTIONS (3)
  - Foetal exposure during pregnancy [Unknown]
  - Intensive care [Unknown]
  - Neonatal infection [Unknown]
